FAERS Safety Report 7283654-4 (Version None)
Quarter: 2011Q1

REPORT INFORMATION
  Report Type: 
  Country: None (occurrence: None)
  Receive Date: 20110209
  Receipt Date: 20110208
  Transmission Date: 20110831
  Serious: Yes (Other)
  Sender: FDA-Public Use
  Company Number: VE-PFIZER INC-2011006053

PATIENT
  Age: 51 Year
  Sex: Female

DRUGS (3)
  1. CHAMPIX [Suspect]
     Indication: SMOKING CESSATION THERAPY
     Dosage: 1 MG, 2X/DAY
     Route: 048
     Dates: start: 20101213
  2. PROFENID [Concomitant]
     Indication: ANALGESIC THERAPY
     Dosage: 200 MG, 1X/DAY
     Route: 048
     Dates: start: 20101221
  3. VENTIDE [Concomitant]
     Indication: ASTHMA
     Dosage: 100/50 MCG, 3X/DAY
     Route: 048

REACTIONS (15)
  - FALL [None]
  - MENTAL DISORDER [None]
  - WEIGHT INCREASED [None]
  - PAIN IN EXTREMITY [None]
  - ASTHMA [None]
  - TONSILLAR DISORDER [None]
  - NAUSEA [None]
  - HEADACHE [None]
  - JOINT EFFUSION [None]
  - CONTUSION [None]
  - INCREASED APPETITE [None]
  - JOINT SPRAIN [None]
  - LIGAMENT RUPTURE [None]
  - THROAT IRRITATION [None]
  - DEPRESSION [None]
